FAERS Safety Report 20845506 (Version 1)
Quarter: 2022Q2

REPORT INFORMATION
  Report Type: Spontaneous
  Country: US (occurrence: None)
  Receive Date: 20220518
  Receipt Date: 20220518
  Transmission Date: 20220721
  Serious: Yes (Hospitalization)
  Sender: FDA-Public Use
  Company Number: None

PATIENT
  Age: 60 Year
  Sex: Male

DRUGS (2)
  1. PREGABALIN [Suspect]
     Active Substance: PREGABALIN
     Indication: Cardiac failure congestive
     Dosage: FREQUENCY : 3 TIMES A DAY;?
     Route: 048
     Dates: start: 20210907, end: 20220202
  2. PREGABALIN [Suspect]
     Active Substance: PREGABALIN
     Indication: Oedema

REACTIONS (6)
  - Dyspnoea [None]
  - Abdominal distension [None]
  - Weight increased [None]
  - Therapy cessation [None]
  - Chest discomfort [None]
  - Generalised oedema [None]

NARRATIVE: CASE EVENT DATE: 20220202
